FAERS Safety Report 7767724-X (Version None)
Quarter: 2011Q3

REPORT INFORMATION
  Report Type: 
  Country: None (occurrence: None)
  Receive Date: 20110922
  Receipt Date: 20110912
  Transmission Date: 20111222
  Serious: Yes (Other)
  Sender: FDA-Public Use
  Company Number: US-SANOFI-AVENTIS-2011SA061610

PATIENT
  Sex: Female

DRUGS (2)
  1. GLYBURIDE [Suspect]
     Indication: TYPE 2 DIABETES MELLITUS
     Route: 048
  2. METFORMIN HCL [Concomitant]

REACTIONS (3)
  - OSTEOMYELITIS [None]
  - SKIN ULCER [None]
  - RENAL IMPAIRMENT [None]
